FAERS Safety Report 8180683-3 (Version None)
Quarter: 2012Q1

REPORT INFORMATION
  Report Type: 
  Country: None (occurrence: None)
  Receive Date: 20120302
  Receipt Date: 20120221
  Transmission Date: 20120608
  Serious: No
  Sender: FDA-Public Use
  Company Number: US-ROCHE-GNE238652

PATIENT
  Sex: Male
  Weight: 81.72 kg

DRUGS (13)
  1. XOPENEX [Concomitant]
     Indication: PRODUCT USED FOR UNKNOWN INDICATION
     Route: 045
  2. ALBUTEROL [Concomitant]
  3. HYDROCHLOROTHIAZIDE [Concomitant]
     Indication: HYPERTENSION
  4. PROVENTIL [Concomitant]
  5. ADVAIR DISKUS 100/50 [Concomitant]
  6. PREVACID [Concomitant]
     Indication: PRODUCT USED FOR UNKNOWN INDICATION
  7. FISH OIL [Concomitant]
     Indication: PRODUCT USED FOR UNKNOWN INDICATION
  8. VITAMIN [Concomitant]
     Dosage: AREDS VITS+ OMEGA 3
  9. PROVENTIL [Concomitant]
  10. LOVAZA [Concomitant]
  11. ALBUTEROL [Concomitant]
  12. AREDS SUPPLEMENT NOS [Concomitant]
  13. LUCENTIS [Suspect]
     Indication: AGE-RELATED MACULAR DEGENERATION
     Dosage: 0.5 MG, 1/MONTH
     Route: 031
     Dates: start: 20061101

REACTIONS (5)
  - PHOTOSENSITIVITY REACTION [None]
  - GLARE [None]
  - MYOPIA [None]
  - LUNG INFECTION [None]
  - PHOTOPHOBIA [None]
